FAERS Safety Report 8853666 (Version 2)
Quarter: 2012Q4

REPORT INFORMATION
  Report Type: Report from Study
  Country: SE (occurrence: SE)
  Receive Date: 20121023
  Receipt Date: 20121109
  Transmission Date: 20130627
  Serious: Yes (Life-Threatening)
  Sender: FDA-Public Use
  Company Number: SE-GENZYME-CLOF-1002288

PATIENT
  Age: 8 Year
  Sex: Female
  Weight: 32 kg

DRUGS (12)
  1. EVOLTRA [Suspect]
     Indication: ACUTE LYMPHOCYTIC LEUKAEMIA
     Dosage: 40 mg/day, 5 days
     Route: 065
     Dates: start: 20111125, end: 20111129
  2. EVOLTRA [Suspect]
     Dosage: 40 mg/m2, qd
     Route: 042
     Dates: start: 20120116, end: 20120120
  3. CYCLOPHOSPHAMIDE [Suspect]
     Indication: CHEMOTHERAPY
     Dosage: UNK
     Route: 065
  4. CYCLOPHOSPHAMIDE [Suspect]
     Dosage: 350 mg, qd
     Route: 065
     Dates: start: 20120116, end: 20120120
  5. ETOPOSIDE [Suspect]
     Indication: CHEMOTHERAPY
     Dosage: UNK
     Route: 065
  6. ETOPOSIDE [Suspect]
     Dosage: 100 mg, qd
     Route: 065
     Dates: start: 20120116, end: 20120120
  7. VFEND [Concomitant]
     Indication: INFECTION
     Dosage: 200 mg, qd
     Route: 065
     Dates: start: 20111125
  8. VALTREX [Concomitant]
     Indication: PROPHYLAXIS
     Dosage: 500 mg, qd
     Route: 065
     Dates: start: 20111125
  9. BACTRIM [Concomitant]
     Indication: PROPHYLAXIS
     Dosage: 800 mg, qd
     Route: 065
     Dates: start: 20111125
  10. BACTRIM [Concomitant]
     Dosage: 160 mg, UNK (Saturday, sunday)
     Route: 065
     Dates: start: 20111125
  11. BETAPRED [Concomitant]
     Indication: ANTIEMETIC SUPPORTIVE CARE
     Dosage: 8 mg, qd
     Route: 065
     Dates: start: 20120116, end: 20120121
  12. GLUCOSE WITH ELECTROLYTES [Concomitant]
     Indication: SUPPORTIVE CARE
     Dosage: 3000 ml, qd
     Route: 065
     Dates: start: 20120116, end: 20120120

REACTIONS (2)
  - Acute lymphocytic leukaemia recurrent [Not Recovered/Not Resolved]
  - Acute lymphocytic leukaemia [Recovered/Resolved]
